FAERS Safety Report 19905879 (Version 1)
Quarter: 2021Q3

REPORT INFORMATION
  Report Type: Spontaneous
  Country: CA (occurrence: CA)
  Receive Date: 20210930
  Receipt Date: 20210930
  Transmission Date: 20211014
  Serious: Yes (Hospitalization)
  Sender: FDA-Public Use
  Company Number: CA-TEVA-2021-CA-1958995

PATIENT
  Age: 16 Year
  Sex: Female
  Weight: 69 kg

DRUGS (8)
  1. CIPROFLOXACIN. [Concomitant]
     Active Substance: CIPROFLOXACIN
  2. MORPHINE [Concomitant]
     Active Substance: MORPHINE
  3. ETHINYL ESTRADIOL/LEVONORGESTREL [Concomitant]
     Active Substance: ETHINYL ESTRADIOL\LEVONORGESTREL
  4. IBUPROFEN. [Suspect]
     Active Substance: IBUPROFEN
     Indication: MIGRAINE
     Dosage: 400 MILLIGRAM DAILY;
     Route: 048
  5. POLYETHYLENE GLYCOL [Concomitant]
     Active Substance: POLYETHYLENE GLYCOLS
  6. DOXYCYCLINE. [Concomitant]
     Active Substance: DOXYCYCLINE
  7. DIMENHYDRINATE. [Concomitant]
     Active Substance: DIMENHYDRINATE
  8. ONDANSETRON [Concomitant]
     Active Substance: ONDANSETRON

REACTIONS (4)
  - Vomiting [Recovered/Resolved]
  - Pyelonephritis acute [Recovered/Resolved]
  - Acute kidney injury [Recovered/Resolved]
  - Dysuria [Recovered/Resolved]
